FAERS Safety Report 25698017 (Version 2)
Quarter: 2025Q3

REPORT INFORMATION
  Report Type: Spontaneous
  Country: CN (occurrence: CN)
  Receive Date: 20250819
  Receipt Date: 20250828
  Transmission Date: 20251020
  Serious: Yes (Hospitalization)
  Sender: SANOFI AVENTIS
  Company Number: CN-SANOFI-02615411

PATIENT
  Age: 61 Year
  Sex: Male

DRUGS (3)
  1. RENVELA [Suspect]
     Active Substance: SEVELAMER CARBONATE
     Indication: Azotaemia
     Route: 048
     Dates: end: 202508
  2. ATORVASTATIN CALCIUM [Concomitant]
     Active Substance: ATORVASTATIN CALCIUM
  3. CINACALCET HYDROCHLORIDE [Concomitant]
     Active Substance: CINACALCET HYDROCHLORIDE

REACTIONS (5)
  - Pain [Unknown]
  - Blood phosphorus increased [Unknown]
  - Vomiting [Unknown]
  - Drug ineffective [Unknown]
  - Suspected counterfeit product [Unknown]

NARRATIVE: CASE EVENT DATE: 20250801
